FAERS Safety Report 14553813 (Version 1)
Quarter: 2018Q1

REPORT INFORMATION
  Report Type: Spontaneous
  Country: CA (occurrence: CA)
  Receive Date: 20180220
  Receipt Date: 20180220
  Transmission Date: 20180509
  Serious: Yes (Other)
  Sender: FDA-Public Use
  Company Number: CA-ELI_LILLY_AND_COMPANY-CA201802004197

PATIENT
  Sex: Female

DRUGS (1)
  1. HUMALOG [Suspect]
     Active Substance: INSULIN LISPRO
     Indication: DIABETES MELLITUS
     Dosage: UNK, UNKNOWN (5-8 UNITS)
     Route: 058

REACTIONS (3)
  - Accidental overdose [Recovered/Resolved]
  - Blood glucose decreased [Recovered/Resolved]
  - Diabetic retinal oedema [Not Recovered/Not Resolved]
